FAERS Safety Report 10052773 (Version 1)
Quarter: 2014Q2

REPORT INFORMATION
  Report Type: Spontaneous
  Country: US (occurrence: US)
  Receive Date: 20140402
  Receipt Date: 20140402
  Transmission Date: 20141212
  Serious: No
  Sender: FDA-Public Use
  Company Number: US-GE HEALTHCARE MEDICAL DIAGNOSTICS-MYVW-PR-1402S-0051

PATIENT
  Sex: Male

DRUGS (4)
  1. MYOVIEW [Suspect]
     Indication: EXERCISE ELECTROCARDIOGRAM ABNORMAL
     Route: 042
     Dates: start: 20140221, end: 20140221
  2. MYOVIEW [Suspect]
     Indication: DIAGNOSTIC PROCEDURE
  3. THALLIUM [Suspect]
  4. TECHNETIUM 99M GENERATOR [Concomitant]

REACTIONS (3)
  - Fatigue [Unknown]
  - Pyrexia [Unknown]
  - Erythema [Unknown]
